FAERS Safety Report 13419006 (Version 3)
Quarter: 2024Q2

REPORT INFORMATION
  Report Type: Spontaneous
  Country: US (occurrence: US)
  Receive Date: 20170407
  Receipt Date: 20240509
  Transmission Date: 20240716
  Serious: No
  Sender: FDA-Public Use
  Company Number: US-JNJFOC-20170318961

PATIENT
  Sex: Male

DRUGS (2)
  1. RISPERDAL [Suspect]
     Active Substance: RISPERIDONE
     Indication: Schizophrenia
     Dosage: VARYING DOSE OF 1 MG  TWO TIMES A DAY AND TITRATED TO 2 MG IN THE MORNING AND 3 MG AT BEDTIME.
     Route: 048
     Dates: start: 20061206, end: 20061228
  2. RISPERDAL [Suspect]
     Active Substance: RISPERIDONE
     Indication: Paranoia

REACTIONS (2)
  - Emotional disorder [Unknown]
  - Gynaecomastia [Unknown]
